FAERS Safety Report 9222462 (Version 1)
Quarter: 2013Q2

REPORT INFORMATION
  Report Type: Spontaneous
  Country: US (occurrence: US)
  Receive Date: 20130410
  Receipt Date: 20130410
  Transmission Date: 20140414
  Serious: No
  Sender: FDA-Public Use
  Company Number: US-BAYER-2013-043940

PATIENT
  Age: 50 Year
  Sex: Female

DRUGS (5)
  1. YASMIN [Suspect]
  2. OCELLA [Suspect]
  3. CRESTOR [Concomitant]
  4. TRICOR [Concomitant]
  5. DOXYCYCLIN AL [DOXYCYCLINE HYCLATE] [Concomitant]

REACTIONS (1)
  - Phlebitis superficial [None]
